FAERS Safety Report 14872058 (Version 1)
Quarter: 2018Q2

REPORT INFORMATION
  Report Type: Spontaneous
  Country: CH (occurrence: CH)
  Receive Date: 20180509
  Receipt Date: 20180509
  Transmission Date: 20180711
  Serious: Yes (Other)
  Sender: FDA-Public Use
  Company Number: CH-ALEXION PHARMACEUTICALS INC.-A201805538

PATIENT
  Age: 54 Year
  Sex: Male

DRUGS (2)
  1. SOLIRIS [Suspect]
     Active Substance: ECULIZUMAB
     Indication: PAROXYSMAL NOCTURNAL HAEMOGLOBINURIA
     Dosage: UNK
     Route: 065
  2. SOLIRIS [Suspect]
     Active Substance: ECULIZUMAB
     Dosage: UNK
     Route: 065

REACTIONS (6)
  - Citrobacter bacteraemia [Unknown]
  - Neisseria infection [Unknown]
  - Heart rate increased [Unknown]
  - Pyrexia [Recovered/Resolved]
  - Blood pressure decreased [Unknown]
  - Poor venous access [Unknown]
